FAERS Safety Report 20230687 (Version 1)
Quarter: 2021Q4

REPORT INFORMATION
  Report Type: Spontaneous
  Country: SE (occurrence: SE)
  Receive Date: 20211227
  Receipt Date: 20211227
  Transmission Date: 20220303
  Serious: Yes (Other)
  Sender: FDA-Public Use
  Company Number: SE-002147023-NVSC2021SE238054

PATIENT
  Sex: Female

DRUGS (1)
  1. XOLAIR [Suspect]
     Active Substance: OMALIZUMAB
     Indication: Urticaria
     Dosage: EVERY THIRD WEEK IN THE BEGINNING THEN LONGER INTERVALS
     Route: 058
     Dates: start: 20210324, end: 20210811

REACTIONS (2)
  - Cancer surgery [Unknown]
  - Inappropriate schedule of product administration [Unknown]
